FAERS Safety Report 11403390 (Version 1)
Quarter: 2015Q3

REPORT INFORMATION
  Report Type: Spontaneous
  Country: US (occurrence: US)
  Receive Date: 20150821
  Receipt Date: 20150821
  Transmission Date: 20151125
  Serious: No
  Sender: FDA-Public Use
  Company Number: US-TEVA-582905USA

PATIENT
  Sex: Female

DRUGS (1)
  1. KARIVA [Suspect]
     Active Substance: DESOGESTREL\ETHINYL ESTRADIOL
     Dosage: 0.15MG/0.02MG/0.01MG
     Route: 048

REACTIONS (2)
  - Abdominal pain upper [Unknown]
  - Urticaria [Unknown]

NARRATIVE: CASE EVENT DATE: 20150727
